FAERS Safety Report 21783249 (Version 1)
Quarter: 2022Q4

REPORT INFORMATION
  Report Type: Spontaneous
  Country: US (occurrence: None)
  Receive Date: 20221223
  Receipt Date: 20221223
  Transmission Date: 20230113
  Serious: No
  Sender: FDA-Public Use
  Company Number: None

PATIENT
  Age: 63 Year
  Sex: Female

DRUGS (1)
  1. EMGALITY [Suspect]
     Active Substance: GALCANEZUMAB-GNLM
     Indication: Migraine
     Dosage: 120MG MONTHLY SUBCUTANEOUS?
     Route: 058
     Dates: start: 202205

REACTIONS (3)
  - Device defective [None]
  - Device leakage [None]
  - Product dose omission in error [None]

NARRATIVE: CASE EVENT DATE: 20221217
